FAERS Safety Report 6168189-4 (Version None)
Quarter: 2009Q2

REPORT INFORMATION
  Report Type: 
  Country: None (occurrence: None)
  Receive Date: 20090427
  Receipt Date: 20090421
  Transmission Date: 20091009
  Serious: Yes (Other)
  Sender: FDA-Public Use
  Company Number: PHHY2009DE15094

PATIENT
  Sex: Female

DRUGS (2)
  1. ACLASTA [Suspect]
     Indication: BONE DENSITY DECREASED
     Dosage: UNK
     Dates: start: 20090113
  2. VACCINES [Concomitant]

REACTIONS (17)
  - ASTHENIA [None]
  - BLISTER [None]
  - DERMATITIS BULLOUS [None]
  - EOSINOPHILIA [None]
  - EYE SWELLING [None]
  - IMMUNE SYSTEM DISORDER [None]
  - INFLUENZA [None]
  - LOOSE TOOTH [None]
  - MALOCCLUSION [None]
  - OROPHARYNGEAL PAIN [None]
  - PAIN [None]
  - PAIN IN EXTREMITY [None]
  - PNEUMONIA [None]
  - PYREXIA [None]
  - SPEECH DISORDER [None]
  - SWELLING [None]
  - TOOTH DISORDER [None]
